FAERS Safety Report 20778501 (Version 1)
Quarter: 2022Q2

REPORT INFORMATION
  Report Type: Spontaneous
  Country: None (occurrence: IT)
  Receive Date: 20220503
  Receipt Date: 20220503
  Transmission Date: 20220721
  Serious: Yes (Other)
  Sender: FDA-Public Use
  Company Number: IT-B.Braun Medical Inc.-2128411

PATIENT
  Age: 68 Year
  Sex: Male

DRUGS (11)
  1. ACETAMINOPHEN [Suspect]
     Active Substance: ACETAMINOPHEN
  2. SIMVASTATIN [Suspect]
     Active Substance: SIMVASTATIN
  3. ASPIRIN [Suspect]
     Active Substance: ASPIRIN
  4. BISOPROLOL. [Suspect]
     Active Substance: BISOPROLOL FUMARATE
  5. CLOPIDOGREL [Suspect]
     Active Substance: CLOPIDOGREL BISULFATE
  6. FENTANYL [Suspect]
     Active Substance: FENTANYL
  7. MANIDIPINE [Suspect]
     Active Substance: MANIDIPINE
  8. PANTOPRAZOLE [Suspect]
     Active Substance: PANTOPRAZOLE
  9. INSULIN GLARGINE [Suspect]
     Active Substance: INSULIN GLARGINE
  10. PEMBROLIZUMAB [Suspect]
     Active Substance: PEMBROLIZUMAB
  11. CANDESARTAN CILEXETIL\HYDROCHLOROTHIAZIDE [Suspect]
     Active Substance: CANDESARTAN CILEXETIL\HYDROCHLOROTHIAZIDE

REACTIONS (1)
  - Trichoglossia [Recovering/Resolving]
